FAERS Safety Report 25979990 (Version 1)
Quarter: 2025Q4

REPORT INFORMATION
  Report Type: Spontaneous
  Country: GB (occurrence: GB)
  Receive Date: 20251030
  Receipt Date: 20251030
  Transmission Date: 20260118
  Serious: Yes (Other)
  Sender: ALKEM
  Company Number: None

PATIENT
  Age: 78 Year
  Sex: Male
  Weight: 82 kg

DRUGS (6)
  1. ATORVASTATIN CALCIUM [Suspect]
     Active Substance: ATORVASTATIN CALCIUM
     Indication: Product used for unknown indication
     Dosage: UNK
     Route: 065
  2. ATORVASTATIN CALCIUM [Suspect]
     Active Substance: ATORVASTATIN CALCIUM
     Dosage: UNK (RECHALLENGE DOSE)
     Route: 065
     Dates: start: 2025
  3. FINASTERIDE [Suspect]
     Active Substance: FINASTERIDE
     Indication: Benign prostatic hyperplasia
     Dosage: 5 MILLIGRAM, QD (TABLET)
     Route: 048
     Dates: start: 2021
  4. FINASTERIDE [Suspect]
     Active Substance: FINASTERIDE
     Dosage: 5 MILLIGRAM, QD (TABLET)
     Route: 048
     Dates: start: 20250306
  5. TAMSULOSIN HYDROCHLORIDE [Suspect]
     Active Substance: TAMSULOSIN HYDROCHLORIDE
     Indication: Benign prostatic hyperplasia
     Dosage: UNK
     Route: 065
     Dates: start: 2019
  6. TAMSULOSIN HYDROCHLORIDE [Suspect]
     Active Substance: TAMSULOSIN HYDROCHLORIDE
     Indication: Breast enlargement
     Dosage: UNK
     Route: 065
     Dates: start: 2021

REACTIONS (7)
  - Suicidal ideation [Not Recovered/Not Resolved]
  - Depression [Not Recovered/Not Resolved]
  - Anxiety [Not Recovered/Not Resolved]
  - Palpitations [Recovering/Resolving]
  - Ageusia [Not Recovered/Not Resolved]
  - Breast enlargement [Unknown]
  - Therapy partial responder [Unknown]
